FAERS Safety Report 5981522-9 (Version None)
Quarter: 2008Q4

REPORT INFORMATION
  Report Type: 
  Country: None (occurrence: None)
  Receive Date: 20081205
  Receipt Date: 20081126
  Transmission Date: 20090506
  Serious: Yes (Death, Hospitalization)
  Sender: FDA-Public Use
  Company Number: FR-ROCHE-580456

PATIENT
  Sex: Male
  Weight: 89.5 kg

DRUGS (32)
  1. METHOXY POLYETHYLENE GLYCOL-EPOETIN BETA [Suspect]
     Dosage: DOSAGE FORM REPORTED AS VIAL.
     Route: 058
     Dates: start: 20041130
  2. METHOXY POLYETHYLENE GLYCOL-EPOETIN BETA [Suspect]
     Dosage: REPORTED AS MONODOSE VIAL.
     Route: 058
  3. METHOXY POLYETHYLENE GLYCOL-EPOETIN BETA [Suspect]
     Dosage: DOSAGE FORM REPORTED AS MONODOSE VIAL.FREQUENCY- QM
     Route: 058
     Dates: start: 20051130
  4. METHOXY POLYETHYLENE GLYCOL-EPOETIN BETA [Suspect]
     Route: 058
     Dates: start: 20070515
  5. METHOXY POLYETHYLENE GLYCOL-EPOETIN BETA [Suspect]
     Route: 058
     Dates: start: 20070619
  6. METHOXY POLYETHYLENE GLYCOL-EPOETIN BETA [Suspect]
     Dosage: REPORTED AS MONODOSE VIAL.
     Route: 058
     Dates: start: 20070719, end: 20070919
  7. METHOXY POLYETHYLENE GLYCOL-EPOETIN BETA [Suspect]
     Dosage: DOSAGE FORM REPORTED AS MONODOSE VIAL.
     Route: 058
     Dates: start: 20071120
  8. METHOXY POLYETHYLENE GLYCOL-EPOETIN BETA [Suspect]
     Route: 058
  9. IRBESARTAN [Concomitant]
     Dates: start: 20060201, end: 20080706
  10. MACROGOL [Concomitant]
     Dates: start: 20051108, end: 20080706
  11. VERAPAMIL [Concomitant]
     Dates: start: 20060201, end: 20080706
  12. ATORVASTATIN CALCIUM [Concomitant]
     Dates: start: 20051108, end: 20080706
  13. ALFACALCIDOL [Concomitant]
     Dates: start: 20051113, end: 20080706
  14. ACETAMINOPHEN [Concomitant]
     Dates: start: 20051108, end: 20080706
  15. SEVELAMER [Concomitant]
     Dates: start: 20051102
  16. SEVELAMER [Concomitant]
     Dates: start: 20051108, end: 20080706
  17. OXYBUTYNINE [Concomitant]
     Dosage: REPORTED AS OXYBUTINE.
     Dates: start: 20051108, end: 20080706
  18. MULTI-VITAMIN [Concomitant]
     Dosage: REPORTED AS POLYVITAMIN.
     Dates: start: 20051206, end: 20080706
  19. FLUINDIONE [Concomitant]
     Dates: start: 20031118
  20. FLUINDIONE [Concomitant]
     Dates: start: 20051118, end: 20080706
  21. FOLIC ACID [Concomitant]
     Dosage: REPORTED AS FOLATE.
     Dates: start: 20051108, end: 20080706
  22. OXCARBAZEPINE [Concomitant]
     Dates: start: 20050829
  23. OXCARBAZEPINE [Concomitant]
     Dates: start: 20060824, end: 20080706
  24. TIANEPTINE [Concomitant]
     Dates: start: 20070705, end: 20080706
  25. BISOPROLOL FUMARATE [Concomitant]
     Dates: start: 20061220
  26. BISOPROLOL FUMARATE [Concomitant]
     Dates: start: 20070705, end: 20080706
  27. TRAMADOL HCL [Concomitant]
     Dates: start: 20060521
  28. TRAMADOL HCL [Concomitant]
     Dates: start: 20070712, end: 20080706
  29. TRIMETOZINE [Concomitant]
     Dates: start: 20070705, end: 20080706
  30. HYDROXYZINE [Concomitant]
     Dates: start: 20070705, end: 20080706
  31. ACETYLSALICYLATE LYSINE [Concomitant]
     Dates: start: 20070705, end: 20080706
  32. CALCIFEDIOL [Concomitant]
     Dates: start: 20071013, end: 20080706

REACTIONS (2)
  - DEATH [None]
  - SPINAL OSTEOARTHRITIS [None]
